FAERS Safety Report 5876225-5 (Version None)
Quarter: 2008Q3

REPORT INFORMATION
  Report Type: 
  Country: None (occurrence: None)
  Receive Date: 20080908
  Receipt Date: 20080902
  Transmission Date: 20090109
  Serious: Yes (Hospitalization)
  Sender: FDA-Public Use
  Company Number: 2008AL009901

PATIENT
  Age: 59 Year
  Sex: Female
  Weight: 73.4827 kg

DRUGS (7)
  1. DIGOXIN [Suspect]
     Indication: PALPITATIONS
     Dosage: .25MG, DAILY, PO
     Route: 048
     Dates: start: 20050101
  2. METOPROLOL TARTRATE [Concomitant]
  3. SYNTHROID [Concomitant]
  4. EFFEXOR [Concomitant]
  5. HYDROCODONE BITARTRATE [Concomitant]
  6. ANTIDEPRESSANTS (UNSPECIFIED) [Concomitant]
  7. PAIN MEDICATIONS (UNSPECIFIED) [Concomitant]

REACTIONS (6)
  - CHEST DISCOMFORT [None]
  - DEPRESSION [None]
  - DIZZINESS [None]
  - FATIGUE [None]
  - HEART RATE IRREGULAR [None]
  - PNEUMONIA [None]
